FAERS Safety Report 12190142 (Version 1)
Quarter: 2016Q1

REPORT INFORMATION
  Report Type: Spontaneous
  Country: US (occurrence: None)
  Receive Date: 20160317
  Receipt Date: 20160317
  Transmission Date: 20160526
  Serious: Yes (Life-Threatening, Hospitalization)
  Sender: FDA-Public Use
  Company Number: None

PATIENT
  Age: 59 Year
  Sex: Male
  Weight: 92.08 kg

DRUGS (13)
  1. PANTOPRAZOLE [Concomitant]
     Active Substance: PANTOPRAZOLE SODIUM
  2. NABUMETONE 500 MG [Suspect]
     Active Substance: NABUMETONE
     Indication: PAIN
     Dosage: ONE PILL TWICE DAILY TAKEN BY MOUTH?LESS THAN ONE YEAR
     Route: 048
  3. ODANSETRON [Concomitant]
     Active Substance: ONDANSETRON
  4. FERROUS SULFIDE [Concomitant]
     Active Substance: FERROUS SULFIDE
  5. AMLODIPINE [Concomitant]
     Active Substance: AMLODIPINE BESYLATE
  6. ALLEGRA [Concomitant]
     Active Substance: FEXOFENADINE HYDROCHLORIDE
  7. TETOSTERONE CYPRIONATE [Concomitant]
  8. ATORVASTATIN [Concomitant]
     Active Substance: ATORVASTATIN
  9. GLYBURIDE-METFORMIN [Concomitant]
  10. FLUTICASONE PROPRIONATE [Concomitant]
  11. GABAPENTIN. [Concomitant]
     Active Substance: GABAPENTIN
  12. EPIPEN [Concomitant]
     Active Substance: EPINEPHRINE
  13. VITAMIN D3 [Concomitant]
     Active Substance: CHOLECALCIFEROL

REACTIONS (3)
  - Internal haemorrhage [None]
  - Peptic ulcer [None]
  - Abdominal discomfort [None]

NARRATIVE: CASE EVENT DATE: 20160302
